FAERS Safety Report 14940260 (Version 2)
Quarter: 2018Q3

REPORT INFORMATION
  Report Type: Report from Study
  Country: CA (occurrence: CA)
  Receive Date: 20180525
  Receipt Date: 20180904
  Transmission Date: 20181010
  Serious: No
  Sender: FDA-Public Use
  Company Number: CA-SA-2018SA125178

PATIENT
  Age: 44 Year
  Sex: Female

DRUGS (7)
  1. METHYLPREDNISOLONE. [Concomitant]
     Active Substance: METHYLPREDNISOLONE
     Dosage: 1000 MG,UNK
     Route: 042
     Dates: start: 20180425, end: 20180427
  2. ACICLOVIR [Concomitant]
     Active Substance: ACYCLOVIR
     Indication: PREMEDICATION
     Dosage: 200 MG,UNK
     Route: 048
     Dates: start: 20180425, end: 20180427
  3. ALEMTUZUMAB [Suspect]
     Active Substance: ALEMTUZUMAB
     Indication: RELAPSING-REMITTING MULTIPLE SCLEROSIS
     Dosage: 12 MG,QD
     Route: 041
     Dates: start: 20180425, end: 20180427
  4. GRAVOL [Concomitant]
     Active Substance: DIMENHYDRINATE
     Indication: PREMEDICATION
     Dosage: 50 MG,UNK
     Route: 048
     Dates: start: 20180425, end: 20180427
  5. BENADRYL [Concomitant]
     Active Substance: DIPHENHYDRAMINE HYDROCHLORIDE
     Indication: PREMEDICATION
     Dosage: UNK UNK,UNK
     Route: 048
     Dates: start: 20180425, end: 20180427
  6. ACETAMINOPHEN. [Concomitant]
     Active Substance: ACETAMINOPHEN
     Indication: PREMEDICATION
     Dosage: 1000 MG,UNK
     Route: 048
     Dates: start: 20180425, end: 20180427
  7. RANITIDINE. [Concomitant]
     Active Substance: RANITIDINE
     Indication: PREMEDICATION
     Dosage: 150 MG,UNK
     Route: 048
     Dates: start: 20180425, end: 20180427

REACTIONS (25)
  - Muscle spasms [Recovered/Resolved]
  - Rash [Recovering/Resolving]
  - Neutrophil percentage increased [Not Recovered/Not Resolved]
  - Leukocyturia [Unknown]
  - Paraesthesia [Recovered/Resolved]
  - Malaise [Recovering/Resolving]
  - Nausea [Recovered/Resolved]
  - Chills [Recovered/Resolved]
  - Neutrophil count increased [Recovered/Resolved]
  - Lymphocyte count decreased [Not Recovered/Not Resolved]
  - Bacterial test [Unknown]
  - Hot flush [Recovering/Resolving]
  - Erythema [Recovering/Resolving]
  - Temperature intolerance [Recovering/Resolving]
  - White blood cell count decreased [Recovered/Resolved]
  - Chest discomfort [Recovering/Resolving]
  - Limb discomfort [Recovered/Resolved]
  - Headache [Recovering/Resolving]
  - Dyspnoea [Recovering/Resolving]
  - Blood urine present [Recovered/Resolved]
  - Monocyte percentage increased [Recovered/Resolved]
  - Rash erythematous [Recovering/Resolving]
  - Pain in extremity [Recovered/Resolved]
  - Urinary sediment present [Unknown]
  - Lymphocyte percentage decreased [Not Recovered/Not Resolved]

NARRATIVE: CASE EVENT DATE: 20180425
